FAERS Safety Report 8075667-X (Version None)
Quarter: 2012Q1

REPORT INFORMATION
  Report Type: 
  Country: None (occurrence: None)
  Receive Date: 20120117
  Receipt Date: 20120110
  Transmission Date: 20120608
  Serious: Yes (Other)
  Sender: FDA-Public Use
  Company Number: 2011AP003205

PATIENT
  Age: 70 Year
  Sex: Female

DRUGS (6)
  1. AMLODIPINE BESYLATE [Suspect]
     Indication: ESSENTIAL HYPERTENSION
     Dosage: 10 MG;;PO;
     Route: 048
     Dates: start: 20051221, end: 20111111
  2. CANDESARTAN CILEXETIL [Concomitant]
  3. DOUBLEBASE (HYDROMOL) [Concomitant]
  4. BENDROFLUMETHIAZIDE [Concomitant]
  5. EUMOVATE (CLOBETASONE BUTYRATE) [Concomitant]
  6. FLUCLOXACILLIN [Concomitant]

REACTIONS (3)
  - FIBRIN D DIMER INCREASED [None]
  - CELLULITIS [None]
  - ULCER [None]
